FAERS Safety Report 13510718 (Version 4)
Quarter: 2017Q2

REPORT INFORMATION
  Report Type: Spontaneous
  Country: DE (occurrence: DE)
  Receive Date: 20170503
  Receipt Date: 20170615
  Transmission Date: 20170830
  Serious: Yes (Hospitalization)
  Sender: FDA-Public Use
  Company Number: DE-SA-2017SA075872

PATIENT
  Age: 33 Year
  Sex: Female

DRUGS (4)
  1. DECORTIN [Concomitant]
     Active Substance: PREDNISONE
     Dosage: GRADUAL REDUCTION OF DOSE
     Dates: start: 201501
  2. LEMTRADA [Suspect]
     Active Substance: ALEMTUZUMAB
     Indication: RELAPSING-REMITTING MULTIPLE SCLEROSIS
     Route: 041
     Dates: start: 20150112, end: 20150116
  3. LEMTRADA [Suspect]
     Active Substance: ALEMTUZUMAB
     Indication: RELAPSING-REMITTING MULTIPLE SCLEROSIS
     Route: 041
     Dates: start: 20160120, end: 20160122
  4. DECORTIN [Concomitant]
     Active Substance: PREDNISONE
     Dates: start: 201501, end: 201501

REACTIONS (2)
  - Haematoma [Unknown]
  - Immune thrombocytopenic purpura [Unknown]

NARRATIVE: CASE EVENT DATE: 201704
